FAERS Safety Report 8127703-X (Version None)
Quarter: 2012Q1

REPORT INFORMATION
  Report Type: 
  Country: None (occurrence: None)
  Receive Date: 20120210
  Receipt Date: 20120207
  Transmission Date: 20120608
  Serious: No
  Sender: FDA-Public Use
  Company Number: US-PFIZER INC-2011315826

PATIENT
  Sex: Female

DRUGS (17)
  1. LASIX [Concomitant]
     Dosage: 40 MG, AS NEEDED
     Route: 048
  2. LEVOTHROID [Concomitant]
     Dosage: 100 UG, 1X/DAY
     Route: 048
  3. PRILOSEC [Concomitant]
     Dosage: 40 MG, 2X/DAY
     Route: 048
  4. ZYRTEC [Concomitant]
     Dosage: 10 MG, 1X/DAY
     Route: 048
  5. CARDIZEM [Concomitant]
     Dosage: 60 MG, 2X/DAY
     Route: 048
  6. ONDANSETRON HCL [Concomitant]
     Indication: NAUSEA
     Dosage: 8 MG, AS NEEDED (1 TABLET BY MOUTH EVERY 8 HOURS AS NEEDED)
     Route: 048
  7. GABAPENTIN [Concomitant]
     Dosage: 400 MG, 2X/DAY
  8. TAXOTERE [Concomitant]
     Dosage: UNK
     Dates: start: 20110511
  9. LORTAB [Concomitant]
     Dosage: 10-500 MG EVERY 6 HOURS AS NEEDED)
     Route: 048
  10. SYNTHROID [Concomitant]
     Dosage: 100 UG, 1X/DAY
     Route: 048
  11. RESTORIL [Concomitant]
     Dosage: 30 MG,NIGHTLY AS NEEDED
     Route: 048
  12. CODEINE SULFATE [Suspect]
     Dosage: UNK
  13. REGLAN [Suspect]
     Dosage: UNK
  14. FLEXERIL [Concomitant]
     Dosage: 10 MG 3 TIMES DAILY AS NEEDED)
     Route: 048
  15. MORPHINE SULFATE [Suspect]
     Dosage: UNK
  16. VALIUM [Concomitant]
     Dosage: 5 MG, 2X/DAY
     Route: 048
  17. SERTRALINE HYDROCHLORIDE [Concomitant]
     Dosage: 100 MG, 2X/DAY

REACTIONS (1)
  - DRUG HYPERSENSITIVITY [None]
